FAERS Safety Report 13049811 (Version 10)
Quarter: 2019Q1

REPORT INFORMATION
  Report Type: Spontaneous
  Country: JP (occurrence: JP)
  Receive Date: 20161221
  Receipt Date: 20190323
  Transmission Date: 20190417
  Serious: Yes (Hospitalization, Other)
  Sender: FDA-Public Use
  Company Number: JP-UNITED THERAPEUTICS-UNT-2016-010698

PATIENT
  Age: 26 Year
  Sex: Male
  Weight: 62 kg

DRUGS (34)
  1. REMODULIN [Suspect]
     Active Substance: TREPROSTINIL
     Dosage: 0.004375 ?G/KG, CONTINUING
     Route: 058
     Dates: start: 20160628
  2. REMODULIN [Suspect]
     Active Substance: TREPROSTINIL
     Dosage: 0.006875 ?G/KG, CONTINUING
     Route: 058
     Dates: start: 20160709
  3. REMODULIN [Suspect]
     Active Substance: TREPROSTINIL
     Indication: PORTOPULMONARY HYPERTENSION
     Dosage: 0.043125 ?G/KG, CONTINUING
     Route: 041
     Dates: start: 20160918
  4. REMODULIN [Suspect]
     Active Substance: TREPROSTINIL
     Indication: PULMONARY ARTERIAL HYPERTENSION
     Dosage: 0.0675 ?G/KG, CONTINUING
     Route: 041
  5. REMODULIN [Suspect]
     Active Substance: TREPROSTINIL
     Dosage: 0.90 ?G/KG, CONTINUING
     Route: 041
     Dates: start: 20180403
  6. REMODULIN [Suspect]
     Active Substance: TREPROSTINIL
     Dosage: 0.127 ?G/KG, CONTINUING
     Route: 041
  7. FUROSEMIDE                         /00032602/ [Concomitant]
     Active Substance: FUROSEMIDE
     Indication: PULMONARY ARTERIAL HYPERTENSION
     Dosage: 40 MG, QD
     Route: 048
     Dates: start: 20160826
  8. FUROSEMIDE                         /00032602/ [Concomitant]
     Active Substance: FUROSEMIDE
     Indication: PORTOPULMONARY HYPERTENSION
     Dosage: 125 MG, QD
     Route: 048
  9. FUROSEMIDE                         /00032602/ [Concomitant]
     Active Substance: FUROSEMIDE
     Dosage: 160 MG, UNK
     Route: 048
  10. ADEMPAS [Concomitant]
     Active Substance: RIOCIGUAT
     Indication: PULMONARY ARTERIAL HYPERTENSION
     Dosage: 0.5 MG, QD
     Route: 048
     Dates: start: 20171206
  11. REMODULIN [Suspect]
     Active Substance: TREPROSTINIL
     Dosage: 0.130 ?G/KG, CONTINUING
     Route: 041
  12. FAMOTIDINE. [Concomitant]
     Active Substance: FAMOTIDINE
     Indication: PRODUCT USED FOR UNKNOWN INDICATION
     Dosage: 20 MG, QD
     Route: 048
  13. LAC B [Concomitant]
     Active Substance: BIFIDOBACTERIUM SPP.
     Indication: PRODUCT USED FOR UNKNOWN INDICATION
     Dosage: 1 G, Q8H
     Route: 048
  14. VENTAVIS [Concomitant]
     Active Substance: ILOPROST
     Indication: PORTOPULMONARY HYPERTENSION
  15. REMODULIN [Suspect]
     Active Substance: TREPROSTINIL
     Dosage: 0.005625 ?G/KG, CONTINUING
     Route: 058
     Dates: start: 20160702
  16. REMODULIN [Suspect]
     Active Substance: TREPROSTINIL
     Dosage: 0.010625 ?G/KG, CONTINUING
     Route: 058
     Dates: end: 20160929
  17. REMODULIN [Suspect]
     Active Substance: TREPROSTINIL
     Dosage: 0.043125 ?G/KG, CONTINUING
     Route: 058
  18. NAPROXEN. [Suspect]
     Active Substance: NAPROXEN
     Indication: PAIN
     Dosage: UNK
     Route: 065
     Dates: start: 2016
  19. REMODULIN [Suspect]
     Active Substance: TREPROSTINIL
     Indication: PORTOPULMONARY HYPERTENSION
     Dosage: 0.004 ?G/KG, CONTINUING
     Route: 058
  20. REMODULIN [Suspect]
     Active Substance: TREPROSTINIL
     Dosage: 0.0295 ?G/KG, CONTINUING
     Route: 058
  21. REMODULIN [Suspect]
     Active Substance: TREPROSTINIL
     Dosage: 0.019375 ?G/KG, CONTINUING
     Route: 058
  22. REMODULIN [Suspect]
     Active Substance: TREPROSTINIL
     Dosage: 0.11 ?G/KG, CONTINUING
     Route: 041
     Dates: start: 20190122
  23. SPIRONOLACTONE. [Concomitant]
     Active Substance: SPIRONOLACTONE
     Indication: PULMONARY ARTERIAL HYPERTENSION
     Dosage: UNK
     Route: 048
     Dates: start: 20160826
  24. SPIRONOLACTONE. [Concomitant]
     Active Substance: SPIRONOLACTONE
     Indication: PORTOPULMONARY HYPERTENSION
  25. REMODULIN [Suspect]
     Active Substance: TREPROSTINIL
     Indication: PULMONARY ARTERIAL HYPERTENSION
     Dosage: 0.000625 ?G/KG, CONTINUING
     Route: 058
     Dates: start: 20160622, end: 20160918
  26. REMODULIN [Suspect]
     Active Substance: TREPROSTINIL
     Dosage: 0.008125 ?G/KG, CONTINUING
     Route: 058
     Dates: start: 20160720
  27. OPSUMIT [Suspect]
     Active Substance: MACITENTAN
     Indication: PORTOPULMONARY HYPERTENSION
     Dosage: 1 MG, UNK
     Route: 048
     Dates: start: 20161030
  28. SLOW K [Concomitant]
     Active Substance: POTASSIUM CHLORIDE
     Dosage: 1200 MG, Q12H
     Route: 048
  29. LOPERAMIDE [Concomitant]
     Active Substance: LOPERAMIDE
     Indication: PRODUCT USED FOR UNKNOWN INDICATION
     Dosage: 600 MG, Q12H
     Route: 048
  30. OPSUMIT [Suspect]
     Active Substance: MACITENTAN
     Indication: PULMONARY ARTERIAL HYPERTENSION
     Dosage: 2 MG, UNK
     Route: 048
     Dates: start: 20161012
  31. VENTAVIS [Concomitant]
     Active Substance: ILOPROST
     Indication: PULMONARY ARTERIAL HYPERTENSION
     Dosage: 5 ?G, Q6H
     Dates: start: 20160818
  32. LAC B [Concomitant]
     Active Substance: BIFIDOBACTERIUM SPP.
     Dosage: 3 G, Q8H
     Route: 048
  33. SLOW K [Concomitant]
     Active Substance: POTASSIUM CHLORIDE
     Indication: PRODUCT USED FOR UNKNOWN INDICATION
     Dosage: 600 MG, Q12H
     Route: 048
  34. ADEMPAS [Concomitant]
     Active Substance: RIOCIGUAT
     Indication: PORTOPULMONARY HYPERTENSION

REACTIONS (12)
  - Device related infection [Recovered/Resolved]
  - Vomiting [Recovering/Resolving]
  - Right ventricular failure [Recovering/Resolving]
  - Nausea [Recovered/Resolved]
  - Pseudomembranous colitis [Unknown]
  - Infusion site pain [Recovered/Resolved]
  - Abdominal pain upper [Recovering/Resolving]
  - Thrombocytopenia [Not Recovered/Not Resolved]
  - Diarrhoea [Recovering/Resolving]
  - Stomatitis [Recovering/Resolving]
  - Leukopenia [Unknown]
  - Infusion site induration [Not Recovered/Not Resolved]

NARRATIVE: CASE EVENT DATE: 20160623
